FAERS Safety Report 17985984 (Version 1)
Quarter: 2020Q3

REPORT INFORMATION
  Report Type: Spontaneous
  Country: HR (occurrence: HR)
  Receive Date: 20200706
  Receipt Date: 20200706
  Transmission Date: 20201103
  Serious: Yes (Other)
  Sender: FDA-Public Use
  Company Number: HR-ABBVIE-20K-216-3464431-00

PATIENT
  Age: 52 Year
  Sex: Male

DRUGS (5)
  1. DASABUVIR [Interacting]
     Active Substance: DASABUVIR
     Indication: CHRONIC HEPATITIS C
     Route: 048
  2. CYCLOSPORINE. [Interacting]
     Active Substance: CYCLOSPORINE
     Dosage: DOSE DECREASED
     Route: 065
  3. OMBITASVIR/PARITAPREVIR/RITONAVIR [Suspect]
     Active Substance: OMBITASVIR\PARITAPREVIR\RITONAVIR
     Indication: CHRONIC HEPATITIS C
     Route: 048
  4. CYCLOSPORINE. [Interacting]
     Active Substance: CYCLOSPORINE
     Indication: PRODUCT USED FOR UNKNOWN INDICATION
     Route: 065
  5. CYCLOSPORINE. [Interacting]
     Active Substance: CYCLOSPORINE
     Dosage: DOSE DECREASED
     Route: 065

REACTIONS (2)
  - Drug interaction [Unknown]
  - Drug-induced liver injury [Recovered/Resolved]
